FAERS Safety Report 13463685 (Version 2)
Quarter: 2017Q2

REPORT INFORMATION
  Report Type: Spontaneous
  Country: US (occurrence: US)
  Receive Date: 20170420
  Receipt Date: 20170421
  Transmission Date: 20170830
  Serious: No
  Sender: FDA-Public Use
  Company Number: US-B.I. PHARMACEUTICALS,INC./RIDGEFIELD-2017-BI-021999

PATIENT
  Age: 80 Year
  Sex: Female

DRUGS (5)
  1. LEVOTHYROXINE. [Concomitant]
     Active Substance: LEVOTHYROXINE
     Indication: THYROIDECTOMY
     Dosage: ONCE DAILY;  FORM STRENGTH: 100MCG; FORMULATION: TABLET
     Route: 048
     Dates: start: 1997
  2. DILTIAZEM HCL CD [Concomitant]
     Active Substance: DILTIAZEM HYDROCHLORIDE
     Indication: HYPERTENSION
     Dosage: ONCE DAILY;  FORM STRENGTH: 180MG; FORMULATION: TABLET
     Route: 048
     Dates: start: 1998
  3. VALSARTAN. [Concomitant]
     Active Substance: VALSARTAN
     Indication: HYPERTENSION
     Dosage: ONCE DAILY;  FORM STRENGTH: 80MG; FORMULATION: TABLET
     Route: 048
     Dates: start: 1998
  4. COMBIVENT [Suspect]
     Active Substance: ALBUTEROL SULFATE\IPRATROPIUM BROMIDE
     Indication: CHRONIC OBSTRUCTIVE PULMONARY DISEASE
     Dosage: 1 INHALATION 4 TIMES DAILY;  FORM STRENGTH: 20 MCG / 100 MCG; FORMULATION: INHALATION SPRAY? ADMINIS
     Route: 055
     Dates: start: 2015
  5. ASPIRIN. [Concomitant]
     Active Substance: ASPIRIN
     Indication: CARDIAC DISORDER
     Dosage: TWO TABLETS DAILY;  FORM STRENGTH: 81MG; FORMULATION: TABLET
     Route: 048
     Dates: start: 1997

REACTIONS (4)
  - Vomiting [Recovered/Resolved]
  - Chest pain [Recovered/Resolved]
  - Viral upper respiratory tract infection [Not Recovered/Not Resolved]
  - Nausea [Recovered/Resolved]

NARRATIVE: CASE EVENT DATE: 20170410
